FAERS Safety Report 18315727 (Version 3)
Quarter: 2021Q1

REPORT INFORMATION
  Report Type: Spontaneous
  Country: FR (occurrence: FR)
  Receive Date: 20200926
  Receipt Date: 20210119
  Transmission Date: 20210419
  Serious: Yes (Other)
  Sender: FDA-Public Use
  Company Number: NVSC2020FR243074

PATIENT
  Sex: Female
  Weight: 62 kg

DRUGS (1)
  1. COSENTYX [Suspect]
     Active Substance: SECUKINUMAB
     Indication: PSORIASIS
     Dosage: 300 MG, QMO
     Route: 058
     Dates: start: 202007, end: 202008

REACTIONS (5)
  - Asthenia [Recovered/Resolved]
  - Folliculitis [Recovered/Resolved]
  - Pharyngitis [Unknown]
  - Ear infection [Recovered/Resolved]
  - Oropharyngeal pain [Unknown]

NARRATIVE: CASE EVENT DATE: 202007
